FAERS Safety Report 17251676 (Version 1)
Quarter: 2020Q1

REPORT INFORMATION
  Report Type: Spontaneous
  Country: US (occurrence: US)
  Receive Date: 20200109
  Receipt Date: 20200109
  Transmission Date: 20200409
  Serious: Yes (Other)
  Sender: FDA-Public Use
  Company Number: NVSC2020US003327

PATIENT
  Age: 53 Year
  Sex: Female

DRUGS (1)
  1. MYCOPHENOLATE MOFETIL. [Suspect]
     Active Substance: MYCOPHENOLATE MOFETIL
     Indication: SYSTEMIC SCLERODERMA
     Dosage: UNK
     Route: 065

REACTIONS (9)
  - Tachypnoea [Unknown]
  - Clostridium difficile infection [Unknown]
  - Necrosis [Unknown]
  - Product use in unapproved indication [Unknown]
  - Skin tightness [Unknown]
  - Oedema peripheral [Unknown]
  - Candida infection [Unknown]
  - Hyponatraemia [Unknown]
  - Blood bicarbonate decreased [Unknown]
